FAERS Safety Report 15115331 (Version 2)
Quarter: 2018Q4

REPORT INFORMATION
  Report Type: Spontaneous
  Country: US (occurrence: US)
  Receive Date: 20180706
  Receipt Date: 20181008
  Transmission Date: 20190204
  Serious: Yes (Other)
  Sender: FDA-Public Use
  Company Number: US-009507513-1806USA011403

PATIENT
  Age: 22 Year
  Sex: Female
  Weight: 84.17 kg

DRUGS (1)
  1. NEXPLANON [Suspect]
     Active Substance: ETONOGESTREL
     Indication: CONTRACEPTION
     Dosage: ONE IMPLANT EVERY 3 YEARS
     Route: 059
     Dates: start: 20171116, end: 20180620

REACTIONS (3)
  - Pregnancy with implant contraceptive [Recovered/Resolved]
  - Premature delivery [Unknown]
  - Unintended pregnancy [Recovered/Resolved]

NARRATIVE: CASE EVENT DATE: 201711
